FAERS Safety Report 4757843-4 (Version None)
Quarter: 2005Q3

REPORT INFORMATION
  Report Type: 
  Country: None (occurrence: None)
  Receive Date: 20050830
  Receipt Date: 20050819
  Transmission Date: 20060218
  Serious: Yes (Hospitalization)
  Sender: FDA-Public Use
  Company Number: 2005-129975-NL

PATIENT
  Age: 19 Year
  Sex: Female

DRUGS (8)
  1. MIRTAZAPINE [Suspect]
     Indication: DEPRESSION
     Dosage: 15 MG ORAL
     Route: 048
     Dates: start: 20050407, end: 20050623
  2. TOBRAMYCIN [Suspect]
     Dosage: 600 MG INTRAVENOUS (NOS)
     Route: 042
     Dates: start: 20050607, end: 20050623
  3. TAZOCIN [Suspect]
     Dosage: 13.5 G INTRAVENOUS (NOS)
     Route: 042
     Dates: start: 20050607, end: 20050621
  4. PANCREATIN [Concomitant]
  5. FLUCLOXACILLIN [Concomitant]
  6. VITAMIN A AND D [Concomitant]
  7. VITAMIN E [Concomitant]
  8. SERETIDE ^ALLEN + HANBURYS LTD^ [Concomitant]

REACTIONS (1)
  - RHABDOMYOLYSIS [None]
